FAERS Safety Report 8051170-8 (Version None)
Quarter: 2012Q1

REPORT INFORMATION
  Report Type: 
  Country: None (occurrence: None)
  Receive Date: 20120117
  Receipt Date: 20120113
  Transmission Date: 20120608
  Serious: Yes (Death)
  Sender: FDA-Public Use
  Company Number: PHEH2012US001310

PATIENT
  Sex: Female

DRUGS (10)
  1. CALCIUM [Concomitant]
     Dosage: 500 MG, UNK
  2. RITALIN [Concomitant]
     Dosage: 10 MG, UNK
  3. MILK OF MAGNESIA TAB [Concomitant]
  4. SENNA [Concomitant]
     Dosage: 15 MG, UNK
  5. ATIVAN [Concomitant]
     Dosage: 1 MG, UNK
  6. SUTENT [Suspect]
  7. FENTANYL [Concomitant]
     Dosage: 75 UG/HR, UNK
  8. OXYCODONE HCL [Concomitant]
     Dosage: 20 MG, UNK
  9. AFINITOR [Suspect]
     Dosage: 1 DF, DAILY
     Route: 048
  10. PREVACID [Concomitant]

REACTIONS (1)
  - DEATH [None]
